FAERS Safety Report 26207720 (Version 1)
Quarter: 2025Q4

REPORT INFORMATION
  Report Type: Spontaneous
  Country: US (occurrence: None)
  Receive Date: 20251225
  Receipt Date: 20251225
  Transmission Date: 20260118
  Serious: Yes (Life-Threatening, Hospitalization, Other)
  Sender: FDA-CTU
  Company Number: None

PATIENT
  Age: 59 Year
  Sex: Female

DRUGS (8)
  1. TAMIFLU [Suspect]
     Active Substance: OSELTAMIVIR PHOSPHATE
  2. LEVOTHYROXINE [Concomitant]
     Active Substance: LEVOTHYROXINE
  3. Vitamin D 50,000 units [Concomitant]
     Dosage: FREQUENCY : WEEKLY;
  4. B12 injections [Concomitant]
  5. COMPAZINE [Concomitant]
     Active Substance: PROCHLORPERAZINE MALEATE
  6. decadent Neulasta [Concomitant]
  7. Tylenol 1000mg [Concomitant]
     Dosage: FREQUENCY : EVERY 4 HOURS;
  8. MOTRIN [Concomitant]
     Active Substance: IBUPROFEN
     Dosage: OTHER FREQUENCY : ONE EVERY 4 HOURS PRN;

REACTIONS (11)
  - Feeling abnormal [None]
  - Dizziness [None]
  - Paraesthesia [None]
  - Hallucination, visual [None]
  - Fear [None]
  - Paranoia [None]
  - Agitation [None]
  - Self-injurious ideation [None]
  - Intentional self-injury [None]
  - Limb injury [None]
  - Contusion [None]

NARRATIVE: CASE EVENT DATE: 20251220
